FAERS Safety Report 15640265 (Version 1)
Quarter: 2018Q4

REPORT INFORMATION
  Report Type: Spontaneous
  Country: US (occurrence: US)
  Receive Date: 20181120
  Receipt Date: 20181120
  Transmission Date: 20190205
  Serious: No
  Sender: FDA-Public Use
  Company Number: US-009507513-1811USA003703

PATIENT
  Age: 9 Year
  Sex: Male

DRUGS (2)
  1. PROVENTIL [Suspect]
     Active Substance: ALBUTEROL
     Indication: ASTHMA
  2. PROVENTIL [Suspect]
     Active Substance: ALBUTEROL
     Indication: EXPOSURE TO TOXIC AGENT
     Dosage: UNK

REACTIONS (1)
  - Product use in unapproved indication [Unknown]
